FAERS Safety Report 7600247-7 (Version None)
Quarter: 2011Q3

REPORT INFORMATION
  Report Type: 
  Country: None (occurrence: None)
  Receive Date: 20110711
  Receipt Date: 20110630
  Transmission Date: 20111222
  Serious: Yes (Disabling, Other)
  Sender: FDA-Public Use
  Company Number: US-MYLANLABS-2011S1013684

PATIENT
  Age: 43 Year
  Sex: Female
  Weight: 65.77 kg

DRUGS (18)
  1. RANITIDINE [Suspect]
     Indication: DYSPEPSIA
  2. LYRICA [Suspect]
     Indication: PAIN
     Route: 048
  3. PRIMIDONE [Concomitant]
  4. BONIVA [Concomitant]
  5. TRAZODONE HCL [Concomitant]
  6. ALLEGRA [Concomitant]
  7. SPIRIVA [Concomitant]
  8. EFFEXOR [Suspect]
     Indication: POST-TRAUMATIC STRESS DISORDER
     Route: 048
     Dates: start: 19790101
  9. EFFEXOR [Suspect]
     Indication: ANXIETY DISORDER
     Route: 048
     Dates: start: 19790101
  10. PROTONIX [Suspect]
     Indication: GASTROOESOPHAGEAL REFLUX DISEASE
     Route: 048
  11. PREVACID [Suspect]
     Indication: DYSPEPSIA
  12. EFFEXOR [Suspect]
     Indication: DEPRESSION
     Route: 048
     Dates: start: 19790101
  13. AMBIEN [Concomitant]
  14. EFFEXOR [Suspect]
     Indication: MAJOR DEPRESSION
     Route: 048
     Dates: start: 19790101
  15. PRILOSEC [Suspect]
     Indication: DYSPEPSIA
  16. KLONOPIN [Concomitant]
  17. EFFEXOR [Suspect]
     Indication: BORDERLINE PERSONALITY DISORDER
     Route: 048
     Dates: start: 19790101
  18. COMBIVENT [Concomitant]

REACTIONS (3)
  - DIABETES MELLITUS [None]
  - PARKINSON'S DISEASE [None]
  - GAIT DISTURBANCE [None]
